FAERS Safety Report 7101254-3 (Version None)
Quarter: 2010Q4

REPORT INFORMATION
  Report Type: 
  Country: None (occurrence: None)
  Receive Date: 20101115
  Receipt Date: 20101101
  Transmission Date: 20110411
  Serious: Yes (Hospitalization)
  Sender: FDA-Public Use
  Company Number: US-CELGENEUS-163-21880-10110320

PATIENT
  Sex: Male
  Weight: 134.93 kg

DRUGS (9)
  1. REVLIMID [Suspect]
     Indication: MULTIPLE MYELOMA
     Route: 048
  2. VELCADE [Suspect]
     Indication: MULTIPLE MYELOMA
     Route: 051
     Dates: start: 20101005, end: 20101012
  3. MELPHALAN HYDROCHLORIDE [Suspect]
     Indication: MULTIPLE MYELOMA
     Route: 065
  4. PREDNI-DOME [Suspect]
     Indication: MULTIPLE MYELOMA
     Route: 065
  5. FLEXERIL [Concomitant]
     Route: 065
     Dates: start: 20100405
  6. OXYCODONE HCL [Concomitant]
     Route: 065
     Dates: start: 20100326
  7. DILAUDID [Concomitant]
     Route: 065
     Dates: start: 20100927
  8. LASIX [Concomitant]
     Route: 065
     Dates: start: 20100420
  9. MIDRIN [Concomitant]
     Route: 065
     Dates: start: 20100924

REACTIONS (2)
  - CELLULITIS [None]
  - SYSTEMIC INFLAMMATORY RESPONSE SYNDROME [None]
